FAERS Safety Report 22993496 (Version 2)
Quarter: 2024Q3

REPORT INFORMATION
  Report Type: Report from Study
  Country: CA (occurrence: CA)
  Receive Date: 20230927
  Receipt Date: 20240731
  Transmission Date: 20241016
  Serious: Yes (Other)
  Sender: ABBVIE
  Company Number: CA-ABBVIE-5422284

PATIENT
  Age: 64 Year
  Sex: Female
  Weight: 63.6 kg

DRUGS (35)
  1. UPADACITINIB [Suspect]
     Active Substance: UPADACITINIB
     Indication: Dermatitis atopic
     Route: 048
     Dates: start: 20220725, end: 20220823
  2. UPADACITINIB [Suspect]
     Active Substance: UPADACITINIB
     Indication: Dermatitis atopic
     Route: 048
     Dates: start: 20220824, end: 20220911
  3. UPADACITINIB [Suspect]
     Active Substance: UPADACITINIB
     Indication: Dermatitis atopic
     Route: 048
     Dates: start: 20220914, end: 20230112
  4. UPADACITINIB [Suspect]
     Active Substance: UPADACITINIB
     Indication: Dermatitis atopic
     Route: 048
     Dates: start: 20230127, end: 20240722
  5. UPADACITINIB [Suspect]
     Active Substance: UPADACITINIB
     Indication: Dermatitis atopic
     Route: 048
     Dates: start: 20240723
  6. NUCALA [Concomitant]
     Active Substance: MEPOLIZUMAB
     Indication: Asthma
     Route: 058
     Dates: start: 202001
  7. SPIRIVA RESPIMAT [Concomitant]
     Active Substance: TIOTROPIUM BROMIDE
     Indication: Asthma
     Dosage: 2 INHALATION
     Route: 055
     Dates: start: 202001
  8. SINGULAIR [Concomitant]
     Active Substance: MONTELUKAST SODIUM
     Indication: Asthma
     Route: 048
     Dates: start: 202001
  9. PROTOPIC [Concomitant]
     Active Substance: TACROLIMUS
     Indication: Dermatitis atopic
     Dosage: TIME INTERVAL: AS NECESSARY: 0.03%
     Route: 061
     Dates: start: 20220210
  10. MOMETASONE [Concomitant]
     Active Substance: MOMETASONE
     Indication: Rhinitis
     Dosage: TIME INTERVAL: AS NECESSARY: 4 SPRAY
     Route: 045
     Dates: start: 20210111
  11. OLOPATADINE [Concomitant]
     Active Substance: OLOPATADINE
     Indication: Rhinitis
     Dosage: TIME INTERVAL: AS NECESSARY: 0.2%
     Route: 047
     Dates: start: 20220210
  12. DEXILANT [Concomitant]
     Active Substance: DEXLANSOPRAZOLE
     Indication: Gastrooesophageal reflux disease
     Route: 048
     Dates: start: 20211125, end: 20240329
  13. ESTRADIOL [Concomitant]
     Active Substance: ESTRADIOL
     Indication: Menopause
     Route: 048
     Dates: start: 2008
  14. AMLODIPINE [Concomitant]
     Active Substance: AMLODIPINE BESYLATE
     Indication: Hypertension
     Route: 048
     Dates: start: 2017
  15. SUMATRIPTAN [Concomitant]
     Active Substance: SUMATRIPTAN
     Indication: Migraine
     Dosage: TIME INTERVAL: AS NECESSARY
     Route: 048
     Dates: start: 1989
  16. PROPRANOLOL [Concomitant]
     Active Substance: PROPRANOLOL HYDROCHLORIDE
     Indication: Migraine
     Route: 048
     Dates: start: 2007
  17. CHOLECALCIFEROL [Concomitant]
     Active Substance: CHOLECALCIFEROL
     Indication: Osteoporosis
     Route: 048
     Dates: start: 20211125, end: 20231109
  18. CHOLECALCIFEROL [Concomitant]
     Active Substance: CHOLECALCIFEROL
     Indication: Osteoporosis
     Route: 048
     Dates: start: 20231110
  19. M CAL [Concomitant]
     Indication: Osteoporosis
     Route: 048
     Dates: start: 20211125
  20. SYNTHROID [Concomitant]
     Active Substance: LEVOTHYROXINE SODIUM
     Indication: Hypothyroidism
     Route: 048
     Dates: start: 20211125
  21. SYSTANE (HYPROMELLOSE 2910 (4000 MPA.S)) [Concomitant]
     Active Substance: HYPROMELLOSE 2910 (4000 MPA.S)
     Indication: Conjunctival irritation
     Dosage: TIME INTERVAL: AS NECESSARY: 1 APPLICATION?EYELID CLEANSING WIPES
     Route: 061
     Dates: start: 202111, end: 202311
  22. ACETAMINOPHEN EXTRA-STRENGTH [Concomitant]
     Indication: Neck pain
     Dosage: TIME INTERVAL: AS NECESSARY
     Route: 048
     Dates: start: 1980
  23. COSMETICS [Concomitant]
     Active Substance: COSMETICS
     Indication: Dermatitis atopic
     Dosage: POSAYMOISTURIZER FACE CREAM?1 APPLICATION
     Route: 061
     Dates: start: 20200226, end: 202405
  24. ZENHALE [Concomitant]
     Active Substance: FORMOTEROL FUMARATE\MOMETASONE FUROATE
     Indication: Bronchitis
     Dosage: TIME INTERVAL: AS NECESSARY: 200 / 5 MG?2 INHALATION
     Route: 055
     Dates: start: 20220902, end: 20240430
  25. ZENHALE [Concomitant]
     Active Substance: FORMOTEROL FUMARATE\MOMETASONE FUROATE
     Indication: Bronchitis
     Dosage: 2 INHALATION
     Route: 055
     Dates: start: 202001
  26. ETHAMBUTOL HYDROCHLORIDE [Concomitant]
     Active Substance: ETHAMBUTOL HYDROCHLORIDE
     Indication: Bronchitis
     Route: 048
     Dates: start: 20230127, end: 20240712
  27. MOXIFLOXACIN [Concomitant]
     Active Substance: MOXIFLOXACIN
     Indication: Bronchitis
     Route: 048
     Dates: start: 20230127, end: 20240712
  28. AZITHROMYCIN [Concomitant]
     Active Substance: AZITHROMYCIN
     Indication: Bronchitis
     Route: 048
     Dates: start: 20230127, end: 20240712
  29. SPIRIVA [Concomitant]
     Active Substance: TIOTROPIUM BROMIDE MONOHYDRATE
     Indication: Bronchitis
     Dosage: 2 INHALATION
     Route: 055
     Dates: start: 20221214, end: 20240430
  30. VENTOLIN [Concomitant]
     Active Substance: ALBUTEROL SULFATE
     Indication: Bronchitis
     Dosage: 1 INHALATION
     Route: 055
     Dates: start: 20221214, end: 202402
  31. AMIKACIN [Concomitant]
     Active Substance: AMIKACIN
     Indication: Bronchitis
     Dosage: TIME INTERVAL: 0.33333333 WEEKS
     Route: 048
     Dates: start: 20230306, end: 20230430
  32. AMIKACIN [Concomitant]
     Active Substance: AMIKACIN
     Indication: Bronchitis
     Dosage: TIME INTERVAL: 0.33333333 WEEKS
     Route: 048
     Dates: start: 20230220, end: 20230227
  33. AMIKACIN [Concomitant]
     Active Substance: AMIKACIN
     Indication: Bronchitis
     Dosage: TIME INTERVAL: 0.33333333 WEEKS
     Route: 048
     Dates: start: 20230227, end: 20230306
  34. HYDROCORTISONE VALERATE [Concomitant]
     Active Substance: HYDROCORTISONE VALERATE
     Indication: Dermatitis atopic
     Dosage: TIME INTERVAL: AS NECESSARY: DOSE UNIT: 1 APPLICATION
     Route: 061
     Dates: start: 20130925, end: 20230424
  35. FLONASE [Concomitant]
     Active Substance: FLUTICASONE PROPIONATE
     Indication: Rhinitis allergic
     Dosage: TIME INTERVAL: AS NECESSARY: DOSE UNIT: 2 (1 PER NOSTRIL) SPRAY
     Route: 045
     Dates: start: 202001

REACTIONS (1)
  - Deafness [Not Recovered/Not Resolved]

NARRATIVE: CASE EVENT DATE: 20230301
